FAERS Safety Report 9391714 (Version 1)
Quarter: 2013Q3

REPORT INFORMATION
  Report Type: Spontaneous
  Country: JP (occurrence: JP)
  Receive Date: 20130709
  Receipt Date: 20130709
  Transmission Date: 20140515
  Serious: Yes (Death, Other)
  Sender: FDA-Public Use
  Company Number: PHHY2013JP072237

PATIENT
  Sex: Female

DRUGS (1)
  1. BISOPROLOL [Suspect]
     Indication: TACHYCARDIA
     Dosage: 10 MG, UNK

REACTIONS (5)
  - Bradycardia [Fatal]
  - Cardiac arrest [Unknown]
  - General physical health deterioration [Unknown]
  - Drug prescribing error [Unknown]
  - Overdose [Unknown]
